FAERS Safety Report 10072341 (Version 1)
Quarter: 2014Q2

REPORT INFORMATION
  Report Type: Report from Study
  Country: AR (occurrence: AR)
  Receive Date: 20140411
  Receipt Date: 20140411
  Transmission Date: 20141212
  Serious: Yes (Death)
  Sender: FDA-Public Use
  Company Number: AR-BRISTOL-MYERS SQUIBB COMPANY-20591426

PATIENT
  Age: 41 Year
  Sex: Female

DRUGS (1)
  1. YERVOY [Suspect]
     Dosage: 1 DF=200MG/40 ML .INTERUPTED ON 24MAR2014.
     Dates: start: 20140210

REACTIONS (1)
  - Death [Fatal]
